FAERS Safety Report 17956779 (Version 1)
Quarter: 2020Q2

REPORT INFORMATION
  Report Type: Spontaneous
  Country: US (occurrence: US)
  Receive Date: 20200628
  Receipt Date: 20200628
  Transmission Date: 20200714
  Serious: No
  Sender: FDA-Public Use
  Company Number: None

PATIENT
  Age: 53 Year
  Sex: Female
  Weight: 71.1 kg

DRUGS (7)
  1. GLATIRAMER ACETATE. [Suspect]
     Active Substance: GLATIRAMER ACETATE
     Indication: MULTIPLE SCLEROSIS
     Dosage: ?          QUANTITY:1 INJECTION(S);OTHER FREQUENCY:3X WEEK;?
     Route: 058
     Dates: start: 20200625, end: 20200627
  2. SOY ISOFLAVONES [Concomitant]
     Active Substance: SOY ISOFLAVONES
  3. D^MANNOSE [Concomitant]
  4. MAGNESIUM [Concomitant]
     Active Substance: MAGNESIUM
  5. MULTI VITAMIN [Concomitant]
     Active Substance: VITAMINS
  6. TART CHERRY (MELATONIN) ALOE VERA [Concomitant]
  7. CRANBERRY. [Concomitant]
     Active Substance: CRANBERRY

REACTIONS (2)
  - Pruritus [None]
  - Injection site urticaria [None]

NARRATIVE: CASE EVENT DATE: 20200627
